FAERS Safety Report 10267446 (Version 1)
Quarter: 2014Q2

REPORT INFORMATION
  Report Type: Report from Study
  Country: US (occurrence: US)
  Receive Date: 20140630
  Receipt Date: 20140630
  Transmission Date: 20141212
  Serious: Yes (Hospitalization)
  Sender: FDA-Public Use
  Company Number: US-SA-2014SA083984

PATIENT
  Age: 49 Year
  Sex: Female

DRUGS (1)
  1. CAMPATH [Suspect]
     Indication: HYPEREOSINOPHILIC SYNDROME
     Dosage: 30MG 4 VIALS
     Route: 065

REACTIONS (1)
  - Hospitalisation [Unknown]
